FAERS Safety Report 18295371 (Version 1)
Quarter: 2020Q3

REPORT INFORMATION
  Report Type: Not Available
  Country: US (occurrence: US)
  Receive Date: 20200922
  Receipt Date: 20200922
  Transmission Date: 20201103
  Serious: Yes (Hospitalization)
  Sender: FDA-Public Use
  Company Number: US-NEUROCRINE BIOSCIENCES INC.-2020NBI03375

PATIENT
  Age: 75 Year
  Sex: Male

DRUGS (1)
  1. INGREZZA [Suspect]
     Active Substance: VALBENAZINE
     Indication: TARDIVE DYSKINESIA
     Route: 048
     Dates: start: 20200721

REACTIONS (8)
  - Diarrhoea [Unknown]
  - Depression [Unknown]
  - Constipation [Unknown]
  - Chest discomfort [Unknown]
  - Chest pain [Unknown]
  - Dyspepsia [Unknown]
  - Drug ineffective [Unknown]
  - Micturition urgency [Unknown]

NARRATIVE: CASE EVENT DATE: 2020
